FAERS Safety Report 25341213 (Version 2)
Quarter: 2025Q2

REPORT INFORMATION
  Report Type: Spontaneous
  Country: TH (occurrence: TH)
  Receive Date: 20250521
  Receipt Date: 20250620
  Transmission Date: 20250716
  Serious: Yes (Life-Threatening, Hospitalization, Other)
  Sender: RANBAXY
  Company Number: TH-SUN PHARMACEUTICAL INDUSTRIES LTD-2025R1-507762

PATIENT
  Age: 64 Year
  Sex: Female
  Weight: 44.8 kg

DRUGS (2)
  1. CISPLATIN [Suspect]
     Active Substance: CISPLATIN
     Indication: Osteosarcoma
     Route: 042
  2. DOXORUBICIN [Concomitant]
     Active Substance: DOXORUBICIN
     Indication: Osteosarcoma
     Route: 042

REACTIONS (6)
  - Oral herpes [Recovered/Resolved]
  - Disseminated herpes simplex [Recovered/Resolved]
  - Enterocolitis [Recovered/Resolved]
  - Febrile neutropenia [Recovered/Resolved]
  - Nausea [Recovered/Resolved]
  - Vomiting [Recovered/Resolved]
